FAERS Safety Report 17846950 (Version 1)
Quarter: 2020Q2

REPORT INFORMATION
  Report Type: Spontaneous
  Country: GB (occurrence: GB)
  Receive Date: 20200601
  Receipt Date: 20200601
  Transmission Date: 20200714
  Serious: Yes (Disabling)
  Sender: FDA-Public Use
  Company Number: GB-TEVA-2020-GB-1242413

PATIENT
  Age: 76 Year
  Sex: Male
  Weight: 87 kg

DRUGS (15)
  1. DOXAZOSIN [Concomitant]
     Active Substance: DOXAZOSIN MESYLATE
     Indication: HYPERTENSION
     Dosage: 6 MG
     Dates: start: 20191007
  2. OMEPRAZOLE. [Concomitant]
     Active Substance: OMEPRAZOLE
     Dosage: 1 DOSAGE FORMS
     Dates: start: 20191007
  3. AMITRIPTYLINE HYDROCHLORIDE. [Concomitant]
     Active Substance: AMITRIPTYLINE HYDROCHLORIDE
     Indication: BACK PAIN
     Dosage: 2 DOSAGE FORMS DAILY; AT NIGHT
     Dates: start: 20191007
  4. TRIMETHOPRIM. [Suspect]
     Active Substance: TRIMETHOPRIM
     Dosage: 400 MG
     Dates: start: 20200316, end: 20200323
  5. OLMESARTAN MEDOXOMIL. [Concomitant]
     Active Substance: OLMESARTAN MEDOXOMIL
     Dosage: 1 DOSAGE FORMS DAILY; AT NIGHT
     Dates: start: 20191007
  6. DILTIAZEM HYDROCHLORIDE. [Concomitant]
     Active Substance: DILTIAZEM HYDROCHLORIDE
     Dosage: 1 DOSAGE FORMS DAILY; MORNING
     Dates: start: 20191028
  7. ACIDEX [Concomitant]
     Active Substance: CALCIUM CARBONATE\SODIUM ALGINATE\SODIUM BICARBONATE
     Dosage: 40 ML
     Dates: start: 20191007
  8. AMOXICILLIN. [Concomitant]
     Active Substance: AMOXICILLIN
     Dosage: 3 DOSAGE FORMS
     Dates: start: 20200508
  9. NITROFURANTOIN. [Concomitant]
     Active Substance: NITROFURANTOIN
     Dosage: 4 DOSAGE FORMS
     Dates: start: 20200228, end: 20200414
  10. BECLOMETASONE [Concomitant]
     Active Substance: BECLOMETHASONE DIPROPIONATE
     Dosage: 2 PUFFS EACH NOSTRIL  (8 DOSAGE FORMS)
     Dates: start: 20191007
  11. FOSTAIR [Concomitant]
     Active Substance: BECLOMETHASONE\FORMOTEROL
     Dosage: INHALE TWO PUFFS TWICE A DAY REDUCING TO ONE PUFF...
     Route: 055
     Dates: start: 20191007
  12. SALBUTAMOL [Concomitant]
     Active Substance: ALBUTEROL
     Dosage: 4 DOSAGE FORMS
     Route: 055
     Dates: start: 20191007
  13. FOLIC ACID. [Concomitant]
     Active Substance: FOLIC ACID
     Dosage: 1 DOSAGE FORMS
     Dates: start: 20191007
  14. CLOPIDOGREL [Concomitant]
     Active Substance: CLOPIDOGREL BISULFATE
     Dosage: 1 DOSAGE FORMS
     Dates: start: 20191007
  15. ALLOPURINOL. [Concomitant]
     Active Substance: ALLOPURINOL
     Indication: GOUT
     Dosage: 1 DOSAGE FORMS
     Dates: start: 20191007

REACTIONS (2)
  - Peripheral swelling [Recovered/Resolved]
  - Joint swelling [Recovered/Resolved]
